FAERS Safety Report 9993554 (Version 3)
Quarter: 2014Q3

REPORT INFORMATION
  Report Type: Report from Study
  Country: AR (occurrence: AR)
  Receive Date: 20140310
  Receipt Date: 20140915
  Transmission Date: 20150326
  Serious: Yes (Other)
  Sender: FDA-Public Use
  Company Number: PHHY2014AR029026

PATIENT
  Sex: Female

DRUGS (3)
  1. TOBI PODHALER [Suspect]
     Active Substance: TOBRAMYCIN
     Indication: BACTERIAL INFECTION
     Dosage: 4 DF(4 CAPSULES IN THE MORNING,4 CAPSULES AT NIGHT), BID
     Route: 048
     Dates: start: 20140704
  2. TOBI PODHALER [Suspect]
     Active Substance: TOBRAMYCIN
     Indication: SINUSITIS
     Dosage: 4 DF(4 CAPSULES IN THE MORNING,4 CAPSULES AT NIGHT), BID
     Route: 048
     Dates: start: 2013, end: 20140526
  3. TOBI [Suspect]
     Active Substance: TOBRAMYCIN
     Indication: CYSTIC FIBROSIS
     Dosage: 8 DF, A DAY
     Route: 055
     Dates: start: 2012

REACTIONS (2)
  - Total lung capacity decreased [Unknown]
  - Lung infection [Unknown]

NARRATIVE: CASE EVENT DATE: 2012
